FAERS Safety Report 9033572 (Version 1)
Quarter: 2013Q1

REPORT INFORMATION
  Report Type: Spontaneous
  Country: PT (occurrence: PT)
  Receive Date: 20130128
  Receipt Date: 20130128
  Transmission Date: 20140127
  Serious: Yes (Life-Threatening, Disabling, Other)
  Sender: FDA-Public Use
  Company Number: PHHY2013PT007088

PATIENT
  Age: 27 Year
  Sex: Male
  Weight: 60 kg

DRUGS (4)
  1. AMOXICILLIN TRIHYDRATE+POTASSIUM CLAVULANATE [Suspect]
     Indication: INFECTION
     Dosage: 1 DF, BID
     Route: 048
     Dates: start: 20110806, end: 20110814
  2. METAMIZOL [Suspect]
     Indication: ANALGESIC THERAPY
     Dosage: 575 MG, QD
     Route: 048
     Dates: start: 20110806, end: 20110814
  3. XUMADOL [Concomitant]
     Indication: ANALGESIC THERAPY
     Dosage: 1 DF, TID
     Route: 048
     Dates: start: 20110806, end: 20110814
  4. SUCRALFATO MYLAN [Concomitant]
     Indication: PROPHYLAXIS
     Dosage: 1 DF, BID
     Route: 048
     Dates: start: 20110806, end: 20110816

REACTIONS (19)
  - Hyperhidrosis [Unknown]
  - Thirst [Unknown]
  - Tic [Unknown]
  - Suicidal ideation [Unknown]
  - Anxiety [Unknown]
  - Eating disorder [Unknown]
  - Anger [Unknown]
  - Homicidal ideation [Unknown]
  - Condition aggravated [Unknown]
  - Depression [Unknown]
  - Aggression [Unknown]
  - Abdominal pain [Unknown]
  - Social avoidant behaviour [Unknown]
  - Faeces discoloured [Unknown]
  - Panic disorder [Unknown]
  - Nervousness [Unknown]
  - Fatigue [Unknown]
  - Toxicity to various agents [Unknown]
  - Vomiting [Unknown]
